FAERS Safety Report 4557046-2 (Version None)
Quarter: 2005Q1

REPORT INFORMATION
  Report Type: 
  Country: None (occurrence: None)
  Receive Date: 20050103
  Receipt Date: 20040910
  Transmission Date: 20050727
  Serious: Yes (Other)
  Sender: FDA-Public Use
  Company Number: 2004UW19122

PATIENT
  Age: 77 Year
  Sex: Female
  Weight: 93.8946 kg

DRUGS (4)
  1. CRESTOR [Suspect]
     Indication: LOW DENSITY LIPOPROTEIN INCREASED
     Dosage: 10 MG PO
     Route: 048
  2. ZETIA [Concomitant]
  3. TOPROL-XL [Concomitant]
  4. NIASPAN [Concomitant]

REACTIONS (4)
  - ASTHENIA [None]
  - COLD SWEAT [None]
  - GAIT DISTURBANCE [None]
  - PAIN IN EXTREMITY [None]
